FAERS Safety Report 8861990 (Version 1)
Quarter: 2012Q4

REPORT INFORMATION
  Report Type: 
  Country: US (occurrence: US)
  Receive Date: 20121025
  Receipt Date: 20121025
  Transmission Date: 20130627
  Serious: Yes (Other)
  Sender: FDA-Public Use
  Company Number: US-SANOFI-AVENTIS-2012SA076971

PATIENT

DRUGS (2)
  1. LANTUS [Suspect]
     Route: 058
  2. ARIXTRA [Concomitant]

REACTIONS (3)
  - Pulmonary sarcoidosis [Unknown]
  - Cough [Unknown]
  - Injection site haematoma [Not Recovered/Not Resolved]
